FAERS Safety Report 10850120 (Version 1)
Quarter: 2015Q1

REPORT INFORMATION
  Report Type: Spontaneous
  Country: US (occurrence: US)
  Receive Date: 20150221
  Receipt Date: 20150221
  Transmission Date: 20150721
  Serious: Yes (Death)
  Sender: FDA-Public Use
  Company Number: US-BANPHARM-20153485

PATIENT
  Age: 53 Year
  Sex: Male

DRUGS (6)
  1. TETRACYCLINE [Suspect]
     Active Substance: TETRACYCLINE
  2. SERTRALINE [Suspect]
     Active Substance: SERTRALINE HYDROCHLORIDE
  3. FLUOXETINE [Suspect]
     Active Substance: FLUOXETINE\FLUOXETINE HYDROCHLORIDE
  4. GABAPENTIN. [Suspect]
     Active Substance: GABAPENTIN
  5. ALLOPURINOL. [Suspect]
     Active Substance: ALLOPURINOL
  6. NAPROXEN UNKNOWN PRODUCT [Suspect]
     Active Substance: NAPROXEN
     Route: 048

REACTIONS (2)
  - Exposure via ingestion [None]
  - Completed suicide [Fatal]
